FAERS Safety Report 7759081-X (Version None)
Quarter: 2011Q3

REPORT INFORMATION
  Report Type: 
  Country: None (occurrence: None)
  Receive Date: 20110919
  Receipt Date: 20110908
  Transmission Date: 20111222
  Serious: Yes (Other)
  Sender: FDA-Public Use
  Company Number: IL-SANOFI-AVENTIS-2011SA052469

PATIENT
  Sex: Male

DRUGS (3)
  1. ACE INHIBITOR NOS [Concomitant]
     Indication: HYPERTENSION
  2. CALCIUM CHANNEL BLOCKERS [Concomitant]
     Indication: HYPERTENSION
  3. MULTAQ [Suspect]
     Route: 048
     Dates: start: 20110701

REACTIONS (1)
  - BLOOD CREATININE INCREASED [None]
